FAERS Safety Report 8567108-0 (Version None)
Quarter: 2012Q3

REPORT INFORMATION
  Report Type: 
  Country: None (occurrence: None)
  Receive Date: 20120803
  Receipt Date: 20111207
  Transmission Date: 20120928
  Serious: No
  Sender: FDA-Public Use
  Company Number: US-ABBOTT-11P-163-0881189-00

PATIENT
  Sex: Male
  Weight: 84.444 kg

DRUGS (6)
  1. NIASPAN [Suspect]
     Indication: BLOOD TRIGLYCERIDES INCREASED
     Dosage: 1500 MG DAILY AT BEDTIME
     Dates: start: 20081201, end: 20101201
  2. NIASPAN [Suspect]
     Dosage: 1000 MG DAILY AT BEDTIME
     Dates: start: 20101201
  3. LISINOPRIL [Concomitant]
     Indication: PRODUCT USED FOR UNKNOWN INDICATION
  4. ASPIRIN [Concomitant]
     Indication: PRODUCT USED FOR UNKNOWN INDICATION
  5. HYDROCHLOROTHIAZIDE [Concomitant]
     Indication: PRODUCT USED FOR UNKNOWN INDICATION
  6. SIMVASTATIN [Concomitant]
     Indication: PRODUCT USED FOR UNKNOWN INDICATION

REACTIONS (7)
  - ABDOMINAL DISCOMFORT [None]
  - DIARRHOEA [None]
  - BLOOD TRIGLYCERIDES INCREASED [None]
  - FLUSHING [None]
  - ERYTHEMA [None]
  - BLOOD BILIRUBIN INCREASED [None]
  - PRURITUS [None]
